FAERS Safety Report 8556143 (Version 3)
Quarter: 2014Q1

REPORT INFORMATION
  Report Type: Spontaneous
  Country: US (occurrence: None)
  Receive Date: 20120315
  Receipt Date: 20130107
  Transmission Date: 20141002
  Serious: No
  Sender: FDA-Public Use
  Company Number: PHHY2011US39744

PATIENT
  Age: 60 Year
  Sex: Male

DRUGS (6)
  1. GILENYA (FTY) CAPSULE, 0.5MG [Suspect]
     Indication: MULTIPLE SCLEROSIS
     Route: 048
     Dates: start: 201103
  2. METFORMIN HYDROCHLORIDE [Concomitant]
  3. TERFENADINE [Concomitant]
  4. LAMICTAL (LAMOTRIGINE) [Concomitant]
  5. LANTUS (INSULIN GLARGINE) [Concomitant]
  6. NOVOLOG (INSULIN ASPART) [Concomitant]

REACTIONS (9)
  - Aphonia [None]
  - Dysphonia [None]
  - Speech disorder [None]
  - Memory impairment [None]
  - Hyperhidrosis [None]
  - Abdominal discomfort [None]
  - Tremor [None]
  - Choking [None]
  - Pain [None]
